FAERS Safety Report 19920294 (Version 3)
Quarter: 2021Q4

REPORT INFORMATION
  Report Type: Other
  Country: AU (occurrence: AU)
  Receive Date: 20211005
  Receipt Date: 20211201
  Transmission Date: 20220303
  Serious: Yes (Other)
  Sender: FDA-Public Use
  Company Number: AU-ASTELLAS-2021US037198

PATIENT
  Age: 37 Year
  Sex: Female

DRUGS (3)
  1. TACROLIMUS [Suspect]
     Active Substance: TACROLIMUS
     Indication: Chronic graft versus host disease
     Dosage: UNK UNK, UNKNOWN FREQ.
     Route: 065
  2. PREDNISONE [Suspect]
     Active Substance: PREDNISONE
     Indication: Chronic graft versus host disease
     Dosage: UNK UNK, UNKNOWN FREQ.
     Route: 065
  3. MYCOPHENOLATE MOFETIL [Suspect]
     Active Substance: MYCOPHENOLATE MOFETIL
     Indication: Chronic graft versus host disease
     Dosage: UNK UNK, UNKNOWN FREQ.
     Route: 065

REACTIONS (3)
  - Graft versus host disease in skin [Unknown]
  - Nervous system disorder [Unknown]
  - Treatment failure [Unknown]
